FAERS Safety Report 5579292-1 (Version None)
Quarter: 2007Q4

REPORT INFORMATION
  Report Type: 
  Country: None (occurrence: None)
  Receive Date: 20071130
  Receipt Date: 20070814
  Transmission Date: 20080405
  Serious: No
  Sender: FDA-Public Use
  Company Number: US200707005633

PATIENT
  Age: 46 Year
  Sex: Male
  Weight: 98.4 kg

DRUGS (3)
  1. BYETTA [Suspect]
     Dosage: 10 UG, SUBCUTANEOUS ; 10 UG, 2/D, SUBCUTANEOUS
     Route: 058
     Dates: start: 20061001
  2. NOVOLOG [Concomitant]
  3. LANTUS [Concomitant]

REACTIONS (7)
  - DECREASED APPETITE [None]
  - HYPOTHYROIDISM [None]
  - INJECTION SITE PAIN [None]
  - NAUSEA [None]
  - NEUROPATHY [None]
  - PAIN IN EXTREMITY [None]
  - SENSORY DISTURBANCE [None]
